FAERS Safety Report 5128867-2 (Version None)
Quarter: 2006Q4

REPORT INFORMATION
  Report Type: 
  Country: None (occurrence: None)
  Receive Date: 20061017
  Receipt Date: 20060417
  Transmission Date: 20070319
  Serious: No
  Sender: FDA-Public Use
  Company Number: US-GLAXOSMITHKLINE-A0601928A

PATIENT
  Age: 47 Year
  Sex: Female

DRUGS (3)
  1. CEFTIN [Suspect]
     Dosage: 500MG TWICE PER DAY
     Route: 048
     Dates: start: 20060406, end: 20060416
  2. CARDURA [Concomitant]
  3. FLONASE [Concomitant]

REACTIONS (2)
  - PRURITUS [None]
  - URTICARIA [None]
